FAERS Safety Report 7221218 (Version 7)
Quarter: 2014Q1

REPORT INFORMATION
  Report Type: Spontaneous
  Country: US (occurrence: US)
  Receive Date: 20091217
  Receipt Date: 20140110
  Transmission Date: 20141002
  Serious: Yes (Hospitalization)
  Sender: FDA-Public Use
  Company Number: US-BIOGENIDEC-2009BI040735

PATIENT
  Age: 51 Year
  Sex: Female

DRUGS (1)
  1. AVONEX [Suspect]
     Indication: MULTIPLE SCLEROSIS
     Route: 030
     Dates: start: 20071027

REACTIONS (18)
  - Fall [Recovered/Resolved]
  - Ankle fracture [Recovered/Resolved with Sequelae]
  - Patella fracture [Not Recovered/Not Resolved]
  - Tibia fracture [Recovered/Resolved]
  - Device issue [Recovered/Resolved]
  - Joint injury [Recovered/Resolved]
  - Joint dislocation [Recovered/Resolved]
  - Lower limb fracture [Recovered/Resolved]
  - Knee arthroplasty [Recovered/Resolved with Sequelae]
  - Accident [Recovered/Resolved]
  - Limb injury [Recovered/Resolved with Sequelae]
  - Infection [Recovered/Resolved with Sequelae]
  - Abasia [Not Recovered/Not Resolved]
  - Urinary incontinence [Not Recovered/Not Resolved]
  - Loss of control of legs [Not Recovered/Not Resolved]
  - Muscle strain [Recovered/Resolved]
  - Middle insomnia [Not Recovered/Not Resolved]
  - Pain in extremity [Not Recovered/Not Resolved]
